FAERS Safety Report 9696135 (Version 2)
Quarter: 2013Q4

REPORT INFORMATION
  Report Type: Spontaneous
  Country: FR (occurrence: FR)
  Receive Date: 20131119
  Receipt Date: 20131209
  Transmission Date: 20140711
  Serious: Yes (Other)
  Sender: FDA-Public Use
  Company Number: FR-TAKEDA-2013TUS002345

PATIENT
  Sex: 0

DRUGS (3)
  1. ADENURIC [Suspect]
     Indication: HYPERURICAEMIA
     Dosage: 120 MG,1 IN 1 D, QD
     Route: 048
     Dates: start: 2011, end: 20130307
  2. ZOLADEX                            /00732101/ [Concomitant]
     Indication: PRODUCT USED FOR UNKNOWN INDICATION
  3. TAREG [Concomitant]
     Indication: HYPERTENSION
     Dosage: 160 MG, UNK
     Route: 048

REACTIONS (2)
  - Systolic dysfunction [Not Recovered/Not Resolved]
  - Myocardial infarction [Not Recovered/Not Resolved]
